FAERS Safety Report 18545949 (Version 2)
Quarter: 2020Q4

REPORT INFORMATION
  Report Type: Report from Study
  Country: US (occurrence: US)
  Receive Date: 20201125
  Receipt Date: 20201215
  Transmission Date: 20210114
  Serious: Yes (Hospitalization)
  Sender: FDA-Public Use
  Company Number: US-JNJFOC-20201040921

PATIENT
  Age: 75 Year
  Sex: Female
  Weight: 108.96 kg

DRUGS (6)
  1. MACITENTAN [Suspect]
     Active Substance: MACITENTAN
     Indication: PULMONARY ARTERIAL HYPERTENSION
     Route: 048
     Dates: start: 20200911
  2. GAS-X [Concomitant]
     Active Substance: DIMETHICONE
  3. MACITENTAN [Suspect]
     Active Substance: MACITENTAN
     Route: 048
     Dates: start: 20200928
  4. MACITENTAN [Suspect]
     Active Substance: MACITENTAN
     Route: 048
     Dates: start: 20200914
  5. SILDENAFIL. [Concomitant]
     Active Substance: SILDENAFIL
  6. OXYGEN. [Concomitant]
     Active Substance: OXYGEN

REACTIONS (12)
  - Oxygen saturation decreased [Recovering/Resolving]
  - Cough [Unknown]
  - Dry throat [Unknown]
  - Urine output decreased [Recovering/Resolving]
  - Abdominal distension [Unknown]
  - Dry mouth [Unknown]
  - Nasal congestion [Unknown]
  - Bronchospasm [Recovering/Resolving]
  - Headache [Unknown]
  - Anaemia [Not Recovered/Not Resolved]
  - Weight decreased [Unknown]
  - Wheezing [Recovering/Resolving]

NARRATIVE: CASE EVENT DATE: 202010
